FAERS Safety Report 5338883-3 (Version None)
Quarter: 2007Q2

REPORT INFORMATION
  Report Type: 
  Country: None (occurrence: None)
  Receive Date: 20070404
  Receipt Date: 20060323
  Transmission Date: 20071010
  Serious: Yes (Other)
  Sender: FDA-Public Use
  Company Number: 060323-0000281

PATIENT
  Age: 3 Day
  Sex: Male

DRUGS (14)
  1. INDOCIN I.V. [Suspect]
     Indication: PATENT DUCTUS ARTERIOSUS
     Dosage: IV
     Route: 042
  2. AMPICILLIN [Concomitant]
  3. GENTAMICIN [Concomitant]
  4. ERYTHROMYCIN [Concomitant]
  5. VITAMIN K [Concomitant]
  6. DOPAMINE HCL [Concomitant]
  7. PARENTERAL [Concomitant]
  8. CEFOTAXIME [Concomitant]
  9. FILGRASTIM [Concomitant]
  10. SODIUM BICARBONATE [Concomitant]
  11. HEPATITIS B VACCINE [Concomitant]
  12. SURFACTANT [Concomitant]
  13. FUROSEMIDE [Concomitant]
  14. GENTAMICIN [Concomitant]

REACTIONS (1)
  - ILEAL PERFORATION [None]
